FAERS Safety Report 9532240 (Version 1)
Quarter: 2013Q3

REPORT INFORMATION
  Report Type: Report from Study
  Country: US (occurrence: ZM)
  Receive Date: 20130918
  Receipt Date: 20130918
  Transmission Date: 20140515
  Serious: Yes (Other)
  Sender: FDA-Public Use
  Company Number: ZM-B.I. PHARMACEUTICALS,INC./RIDGEFIELD-2013-BI-28514GD

PATIENT
  Sex: 0

DRUGS (2)
  1. VIRAMUNE [Suspect]
     Indication: HIV INFECTION
  2. NRTI [Suspect]
     Indication: HIV INFECTION

REACTIONS (1)
  - Convulsion [Recovered/Resolved]
